FAERS Safety Report 15562725 (Version 4)
Quarter: 2018Q4

REPORT INFORMATION
  Report Type: Report from Study
  Country: US (occurrence: US)
  Receive Date: 20181029
  Receipt Date: 20181105
  Transmission Date: 20190205
  Serious: Yes (Death, Hospitalization)
  Sender: FDA-Public Use
  Company Number: US-PFIZER INC-2018442515

PATIENT
  Age: 75 Year
  Sex: Female
  Weight: 60 kg

DRUGS (24)
  1. ASPIRIN. [Concomitant]
     Active Substance: ASPIRIN
     Dosage: 81 MG, UNK
     Dates: start: 20171113
  2. CEPHALEXIN. [Concomitant]
     Active Substance: CEPHALEXIN
     Dosage: 500 MG, UNK
     Dates: start: 20180608
  3. ALUMINIUM HYDROXIDE;DIPHENHYDRAMINE HYDROCHLORIDE;LIDOCAINE HYDROCHLOR [Concomitant]
     Dosage: 30 ML, UNK
     Dates: start: 20171031
  4. AXITINIB [Suspect]
     Active Substance: AXITINIB
     Dosage: 3 MG, 2X/DAY (FLUCTUATED DOSES) (CYCLE 16)
     Route: 048
     Dates: start: 20180814, end: 20180903
  5. LASIX [Concomitant]
     Active Substance: FUROSEMIDE
     Dosage: 20 MG, UNK
     Dates: start: 20171127
  6. PREDNISONE. [Concomitant]
     Active Substance: PREDNISONE
     Dosage: 5 MG, UNK
     Dates: start: 20181010
  7. AXITINIB [Suspect]
     Active Substance: AXITINIB
     Indication: METASTATIC RENAL CELL CARCINOMA
     Dosage: 5 MG, 2X/DAY (FLUCTUATED DOSES)
     Route: 048
     Dates: start: 20171003, end: 20180813
  8. PEMBROLIZUMAB. [Suspect]
     Active Substance: PEMBROLIZUMAB
     Indication: METASTATIC RENAL CELL CARCINOMA
     Dosage: 200 MG, EVERY 3 WEEKS (VOLUME OF INFUSION: 118 ML)
     Route: 042
     Dates: start: 20171003, end: 20180522
  9. PEMBROLIZUMAB. [Suspect]
     Active Substance: PEMBROLIZUMAB
     Dosage: 200 MG, EVERY 3 WEEKS (CYCLE 13)
     Route: 042
     Dates: start: 20180612, end: 20180612
  10. PREDNISONE. [Concomitant]
     Active Substance: PREDNISONE
     Dosage: 10 MG, UNK
     Dates: start: 20181007, end: 20181009
  11. BISOPROLOL [Concomitant]
     Active Substance: BISOPROLOL
     Dosage: 5 MG, UNK
     Dates: start: 20180912
  12. NYSTATIN. [Concomitant]
     Active Substance: NYSTATIN
     Dosage: UNK
     Dates: start: 20180925
  13. TYLENOL [Concomitant]
     Active Substance: ACETAMINOPHEN
     Dosage: 325 MG, UNK
     Dates: start: 20180131
  14. LEVOTHYROXINE SODIUM. [Concomitant]
     Active Substance: LEVOTHYROXINE SODIUM
     Dosage: 150 MG, UNK
     Dates: start: 20180925
  15. ELIQUIS [Concomitant]
     Active Substance: APIXABAN
     Dosage: 5 MG, UNK
     Dates: start: 20170729
  16. AMIODARONE [Concomitant]
     Active Substance: AMIODARONE
     Dosage: 200 MG, UNK
     Dates: start: 20171027
  17. BENZONATATE. [Concomitant]
     Active Substance: BENZONATATE
     Dosage: 100 MG, UNK
     Dates: start: 20180724
  18. HALLS MENTHOLYPTUS [Concomitant]
     Active Substance: MENTHOL
     Dosage: 1 DF, UNK
     Dates: start: 201807
  19. NEOSPORIN CREAM [Concomitant]
     Dosage: 1 DF, UNK
     Dates: start: 201712
  20. CIPRO [Concomitant]
     Active Substance: CIPROFLOXACIN HYDROCHLORIDE
     Dosage: 500 MG, UNK
     Dates: start: 20171226, end: 20180925
  21. VESICARE [Concomitant]
     Active Substance: SOLIFENACIN SUCCINATE
     Dosage: 10 MG, UNK
     Dates: start: 201709
  22. NEXIUM [ESOMEPRAZOLE MAGNESIUM] [Concomitant]
     Dosage: 20 MG, UNK
     Dates: start: 20180206
  23. CODEINE W/GUAIFENESIN [Concomitant]
     Active Substance: CODEINE\GUAIFENESIN
     Dosage: 1 DF, UNK
     Dates: start: 20180814
  24. COLLAGENASE SANTYL [Concomitant]
     Active Substance: COLLAGENASE CLOSTRIDIUM HISTOLYTICUM
     Dosage: 250 DF, UNK
     Dates: start: 20180807

REACTIONS (1)
  - Respiratory failure [Fatal]

NARRATIVE: CASE EVENT DATE: 20181022
